FAERS Safety Report 4667957-5 (Version None)
Quarter: 2005Q2

REPORT INFORMATION
  Report Type: 
  Country: None (occurrence: None)
  Receive Date: 20050520
  Receipt Date: 20050513
  Transmission Date: 20051028
  Serious: Yes (Death)
  Sender: FDA-Public Use
  Company Number: 2005AP02800

PATIENT
  Age: 55 Year
  Sex: Female

DRUGS (2)
  1. DIPRIVAN [Suspect]
     Route: 042
     Dates: start: 20050508
  2. MUSCULAX [Concomitant]
     Dates: start: 20050508, end: 20050508

REACTIONS (3)
  - DISSEMINATED INTRAVASCULAR COAGULATION [None]
  - HYPERTHERMIA MALIGNANT [None]
  - RENAL FAILURE [None]
